FAERS Safety Report 20087458 (Version 4)
Quarter: 2023Q4

REPORT INFORMATION
  Report Type: Spontaneous
  Country: US (occurrence: US)
  Receive Date: 20211118
  Receipt Date: 20231129
  Transmission Date: 20240110
  Serious: No
  Sender: FDA-Public Use
  Company Number: US-PFIZER INC-2021527144

PATIENT
  Age: 69 Year
  Sex: Male
  Weight: 102.06 kg

DRUGS (2)
  1. XELJANZ XR [Suspect]
     Active Substance: TOFACITINIB CITRATE
     Indication: Rheumatoid arthritis
     Dosage: 11 MG, ONCE DAILY
     Route: 048
     Dates: start: 20210430
  2. PREDNISONE [Concomitant]
     Active Substance: PREDNISONE
     Indication: Pain
     Dosage: 15 MG (3 TABLETS OF 5 MG), ONCE DAILY FOR TWO WEEKS
     Route: 048
     Dates: start: 202104

REACTIONS (1)
  - Muscle spasms [Unknown]
